FAERS Safety Report 10577800 (Version 1)
Quarter: 2014Q4

REPORT INFORMATION
  Report Type: Spontaneous
  Country: US (occurrence: US)
  Receive Date: 20141111
  Receipt Date: 20141111
  Transmission Date: 20150529
  Serious: Yes (Death)
  Sender: FDA-Public Use
  Company Number: US-009507513-1411USA003551

PATIENT
  Age: 54 Year

DRUGS (2)
  1. CASPOFUNGIN ACETATE [Suspect]
     Active Substance: CASPOFUNGIN ACETATE
     Indication: FUNGAL PERITONITIS
  2. CASPOFUNGIN ACETATE [Suspect]
     Active Substance: CASPOFUNGIN ACETATE
     Indication: FUNGAEMIA
     Dosage: UNKNOWN

REACTIONS (2)
  - Drug ineffective [Unknown]
  - Abdominal infection [Fatal]
